FAERS Safety Report 5983412-4 (Version None)
Quarter: 2008Q4

REPORT INFORMATION
  Report Type: 
  Country: None (occurrence: None)
  Receive Date: 20081208
  Receipt Date: 20080819
  Transmission Date: 20090506
  Serious: No
  Sender: FDA-Public Use
  Company Number: US-BAYER-200814550BCC

PATIENT
  Sex: Female
  Weight: 86 kg

DRUGS (2)
  1. ALEVE [Suspect]
     Dosage: UNIT DOSE: 220 MG
     Dates: start: 20080819
  2. ALEVE [Suspect]
     Dosage: UNIT DOSE: 220 MG
     Dates: start: 20080819

REACTIONS (1)
  - NO ADVERSE EVENT [None]
